FAERS Safety Report 15129614 (Version 1)
Quarter: 2018Q3

REPORT INFORMATION
  Report Type: Spontaneous
  Country: US (occurrence: US)
  Receive Date: 20180711
  Receipt Date: 20180711
  Transmission Date: 20181010
  Serious: No
  Sender: FDA-Public Use
  Company Number: US-SA-2018SA170430

PATIENT
  Sex: Male

DRUGS (4)
  1. CAPZASIN QUICK RELIEF GEL [Suspect]
     Active Substance: CAPSAICIN
     Indication: PAIN
  2. BLUE EMU CONTINUOUS PAIN RELIEF [Concomitant]
     Indication: PAIN
  3. AUSTRALIAN DREAM PAIN RELIEVING ARTHRITIS [Concomitant]
     Active Substance: HISTAMINE DIHYDROCHLORIDE
     Indication: PAIN
  4. ARNICARE [Concomitant]
     Active Substance: HOMEOPATHICS
     Indication: PAIN

REACTIONS (1)
  - Burning sensation [Unknown]
